FAERS Safety Report 8336631-6 (Version None)
Quarter: 2012Q2

REPORT INFORMATION
  Report Type: 
  Country: None (occurrence: None)
  Receive Date: 20120504
  Receipt Date: 20120424
  Transmission Date: 20120825
  Serious: Yes (Other)
  Sender: FDA-Public Use
  Company Number: US-SANOFI-AVENTIS-2012SA028994

PATIENT
  Sex: Female

DRUGS (3)
  1. PLAVIX [Suspect]
     Indication: STENT PLACEMENT
     Route: 065
     Dates: start: 20050101, end: 20120101
  2. DRUG USED IN DIABETES [Concomitant]
  3. HUMULIN R [Concomitant]

REACTIONS (16)
  - RECTAL HAEMORRHAGE [None]
  - MUSCLE SPASMS [None]
  - HAEMARTHROSIS [None]
  - EAR HAEMORRHAGE [None]
  - MOUTH HAEMORRHAGE [None]
  - BLINDNESS UNILATERAL [None]
  - EPISTAXIS [None]
  - EYE HAEMORRHAGE [None]
  - WEIGHT DECREASED [None]
  - GAIT DISTURBANCE [None]
  - BLISTER [None]
  - CATARACT [None]
  - JOINT SWELLING [None]
  - BLOOD CHOLESTEROL INCREASED [None]
  - HYPOAESTHESIA [None]
  - RENAL DISORDER [None]
